FAERS Safety Report 8495897-2 (Version None)
Quarter: 2012Q3

REPORT INFORMATION
  Report Type: 
  Country: None (occurrence: None)
  Receive Date: 20120709
  Receipt Date: 20120703
  Transmission Date: 20120928
  Serious: Yes (Death)
  Sender: FDA-Public Use
  Company Number: PHEH2012US013252

PATIENT
  Sex: Female

DRUGS (8)
  1. PHENERGAN HCL [Concomitant]
     Dosage: 25 MG, UNK
  2. IRON [Concomitant]
     Dosage: 50 MG, UNK
  3. VITAMIN D HIGH CAP POTENCY [Concomitant]
  4. NEXIUM [Concomitant]
     Dosage: 20 MG, UNK
  5. KRILL OIL [Concomitant]
     Dosage: 300 MG, UNK
  6. ASCORBIC ACID [Concomitant]
     Dosage: 100 MG, UNK
  7. AFINITOR [Suspect]
     Dosage: 10 MG, DAILY
     Route: 048
  8. REGELAN [Concomitant]
     Dosage: 10 MG, UNK

REACTIONS (1)
  - DEATH [None]
